FAERS Safety Report 6071036-2 (Version None)
Quarter: 2009Q1

REPORT INFORMATION
  Report Type: 
  Country: None (occurrence: None)
  Receive Date: 20090209
  Receipt Date: 20090206
  Transmission Date: 20090719
  Serious: Yes (Other)
  Sender: FDA-Public Use
  Company Number: B0557952A

PATIENT
  Age: 75 Year
  Sex: Female
  Weight: 47 kg

DRUGS (5)
  1. RELENZA [Suspect]
     Indication: INFLUENZA
     Dosage: 10MG TWICE PER DAY
     Route: 055
     Dates: start: 20090126, end: 20090129
  2. ASVERIN [Concomitant]
     Dosage: 20MG THREE TIMES PER DAY
     Route: 048
  3. CALONAL [Concomitant]
     Route: 048
  4. BISOLVON [Concomitant]
     Route: 048
  5. CHINESE MEDICINE [Concomitant]
     Dosage: 2.5G THREE TIMES PER DAY
     Route: 048

REACTIONS (1)
  - HALLUCINATION [None]
